FAERS Safety Report 5978511 (Version 3)
Quarter: 2013Q1

REPORT INFORMATION
  Report Type: Other
  Country: FI (occurrence: FI)
  Receive Date: 20060208
  Receipt Date: 20130128
  Transmission Date: 20140127
  Serious: Yes (Death, Congenital Anomaly, Other)
  Sender: FDA-Public Use
  Company Number: FI-RB-2744-2006

PATIENT
  Sex: Male

DRUGS (7)
  1. BUPRENORPHINE HYDROCHLORIDE [Suspect]
     Indication: DRUG DEPENDENCE
     Route: 064
  2. BUPRENORPHINE HYDROCHLORIDE [Suspect]
     Dosage: 6-7 MG QD
     Route: 064
  3. MIANSERIN [Suspect]
     Indication: PRODUCT USED FOR UNKNOWN INDICATION
     Dosage: DOSAGE UNKNOWN
     Route: 064
  4. PROMAZINE [Suspect]
     Indication: PRODUCT USED FOR UNKNOWN INDICATION
     Dosage: DOSAGE UNKNOWN
     Route: 064
  5. CHLORPROTHIXENE [Suspect]
     Indication: PRODUCT USED FOR UNKNOWN INDICATION
     Dosage: DOSAGE UNKNOWN
     Route: 064
  6. METRONIDAZOLE [Suspect]
     Indication: PRODUCT USED FOR UNKNOWN INDICATION
     Dosage: DOSAGE UNKNOWN
     Route: 064
  7. PROPACETAMOL [Suspect]
     Indication: PRODUCT USED FOR UNKNOWN INDICATION
     Dosage: DOSAGE UNKNOWN
     Route: 064

REACTIONS (9)
  - Death [Fatal]
  - Premature baby [Fatal]
  - Ventricular hypoplasia [Fatal]
  - Renal dysplasia [Fatal]
  - Diaphragmatic hernia [Fatal]
  - Haemorrhage [Fatal]
  - Pulmonary hypoplasia [Fatal]
  - Apgar score abnormal [Recovered/Resolved]
  - Foetal exposure during pregnancy [Recovered/Resolved]
